FAERS Safety Report 24754559 (Version 1)
Quarter: 2024Q4

REPORT INFORMATION
  Report Type: Report from Study
  Country: FR (occurrence: FR)
  Receive Date: 20241219
  Receipt Date: 20241219
  Transmission Date: 20250114
  Serious: Yes (Other)
  Sender: PFIZER
  Company Number: FR-PFIZER INC-PV202400132334

PATIENT
  Age: 77 Year
  Sex: Female
  Weight: 81 kg

DRUGS (17)
  1. XALKORI [Interacting]
     Active Substance: CRIZOTINIB
     Indication: Metastatic bronchial carcinoma
     Dosage: 200 MG, 2X/DAY, MORNING AND EVENING
     Route: 048
     Dates: start: 20240220, end: 20240305
  2. XALKORI [Interacting]
     Active Substance: CRIZOTINIB
     Dosage: 56 MG/M2 X 2/DAY IE 100 MG IN MORNING AND IN EVENING
     Route: 048
     Dates: start: 20240320, end: 20240423
  3. NEORAL [Interacting]
     Active Substance: CYCLOSPORINE
     Indication: Renal transplant
     Dosage: 60 MG, 2X/DAY, MORNING AND EVENING
  4. MYFORTIC [Concomitant]
     Active Substance: MYCOPHENOLATE SODIUM
     Dosage: 180 MG, 2X/DAY, 180 MG IN THE MORNING AND 180 MG IN THE EVENING
  5. PREDNISOLONE [Concomitant]
     Active Substance: PREDNISOLONE
     Dosage: 5 MG, 1X/DAY, IN THE MORNING
  6. ESOMEPRAZOLE MAGNESIUM [Concomitant]
     Active Substance: ESOMEPRAZOLE MAGNESIUM
     Dosage: 20 MG, 1X/DAY, 1 TABLET IN THE EVENING
  7. GAVISCON [ALUMINIUM HYDROXIDE;MAGNESIUM CARBONATE] [Concomitant]
     Dosage: 1 SACHET IF NEEDED AT A LATER DATE OF OTHER TREATMENTS
  8. INSULIN HUMAN [Concomitant]
     Active Substance: INSULIN HUMAN
  9. NOVORAPID [Concomitant]
     Active Substance: INSULIN ASPART
  10. KARDEGIC [Concomitant]
     Active Substance: ASPIRIN DL-LYSINE
     Dosage: 75 MG, 1X/DAY, 1 SACHET AT NOON
  11. RAMIPRIL [Concomitant]
     Active Substance: RAMIPRIL
     Dosage: 1 TABLET IN THE MORNING AND EVENING
  12. AMLODIPINE [Concomitant]
     Active Substance: AMLODIPINE BESYLATE
     Dosage: 5 MG, 1X/DAY, 1 CAPSULE IN THE MORNING
  13. FUROSEMIDE SODIUM [Concomitant]
     Active Substance: FUROSEMIDE SODIUM
     Dosage: 40 MG, 1X/DAY, 1 TABLET IN THE MORNING
  14. CHOLECALCIFEROL [Concomitant]
     Active Substance: CHOLECALCIFEROL
     Dosage: 1 VIAL EVERY MONTH
  15. DOLIPRANE [Concomitant]
     Active Substance: ACETAMINOPHEN
     Indication: Pain
     Dosage: 1G EVERY 6 HOURS, IF PAIN
  16. MELATONIN [Concomitant]
     Active Substance: MELATONIN
     Dosage: 1 MG, 1X/DAY, 1 TABLET IN THE EVENING
  17. XANAX [Concomitant]
     Active Substance: ALPRAZOLAM
     Dosage: 0.25 MG: 0.5 TABLET PER DAY

REACTIONS (9)
  - Acute kidney injury [Recovered/Resolved]
  - Diarrhoea [Recovered/Resolved]
  - Oedema peripheral [Recovered/Resolved]
  - Eye pain [Recovered/Resolved]
  - Eye oedema [Recovered/Resolved]
  - Restless legs syndrome [Recovered/Resolved]
  - Hypertension [Recovered/Resolved]
  - Constipation [Recovered/Resolved]
  - Drug interaction [Recovered/Resolved]

NARRATIVE: CASE EVENT DATE: 20240201
